FAERS Safety Report 6729300-7 (Version None)
Quarter: 2010Q2

REPORT INFORMATION
  Report Type: 
  Country: None (occurrence: None)
  Receive Date: 20100517
  Receipt Date: 20100505
  Transmission Date: 20101027
  Serious: No
  Sender: FDA-Public Use
  Company Number: US-ABBOTT-10P-163-0642575-00

PATIENT
  Sex: Female
  Weight: 97.156 kg

DRUGS (13)
  1. SIMCOR [Suspect]
     Indication: HIGH DENSITY LIPOPROTEIN DECREASED
     Dosage: 500/20MG NIGHTLY
     Route: 048
     Dates: start: 20090501
  2. ATACAND [Concomitant]
     Indication: DRUG USE FOR UNKNOWN INDICATION
     Dosage: AS DIRECTED
  3. METFORMIN HYDROCHLORIDE [Concomitant]
     Indication: DRUG USE FOR UNKNOWN INDICATION
     Dosage: AS DIRECTED
  4. FOLIC ACID [Concomitant]
     Indication: DRUG USE FOR UNKNOWN INDICATION
     Dosage: AS DIRECTED
  5. GLIMIPIRIDE [Concomitant]
     Indication: DRUG USE FOR UNKNOWN INDICATION
     Dosage: AS DIRECTED
  6. ACTOS [Concomitant]
     Indication: DRUG USE FOR UNKNOWN INDICATION
     Dosage: AS DIRECTED
  7. DILATAZEM [Concomitant]
     Indication: DRUG USE FOR UNKNOWN INDICATION
     Dosage: AS DIRECTED
  8. PHENOFIBRATE [Concomitant]
     Indication: DRUG USE FOR UNKNOWN INDICATION
     Dosage: AS DIRECTED
  9. VITAMAIN D [Concomitant]
     Indication: DRUG USE FOR UNKNOWN INDICATION
     Dosage: AS DIRECTED
  10. BYETTA [Concomitant]
     Indication: DRUG USE FOR UNKNOWN INDICATION
     Dosage: AS DIRECTED
     Route: 050
  11. METHOTREXATE [Concomitant]
     Indication: DRUG USE FOR UNKNOWN INDICATION
     Dosage: AS DIRECTED
     Route: 050
  12. REMICADE [Concomitant]
     Indication: DRUG USE FOR UNKNOWN INDICATION
     Dosage: AS DIRECTED
     Route: 050
  13. REGULAR TYLENOL OVER THE COUNTER [Concomitant]
     Indication: DRUG USE FOR UNKNOWN INDICATION
     Dosage: AS DIRECTED

REACTIONS (1)
  - FLUSHING [None]
